FAERS Safety Report 5285035-1 (Version None)
Quarter: 2007Q2

REPORT INFORMATION
  Report Type: 
  Country: None (occurrence: None)
  Receive Date: 20070403
  Receipt Date: 20070312
  Transmission Date: 20071010
  Serious: Yes (Other)
  Sender: FDA-Public Use
  Company Number: US-SANOFI-SYNTHELABO-A03200702339

PATIENT
  Sex: Female

DRUGS (6)
  1. PROMETHAZINE [Concomitant]
     Indication: DRUG USE FOR UNKNOWN INDICATION
     Route: 065
  2. RANITIDINE [Concomitant]
     Indication: DRUG USE FOR UNKNOWN INDICATION
     Route: 065
  3. CEPHALEXIN [Concomitant]
     Indication: DRUG USE FOR UNKNOWN INDICATION
     Route: 065
  4. ACETAMINOPHEN AND HYDROCODONE BITARTRATE [Concomitant]
     Indication: DRUG USE FOR UNKNOWN INDICATION
     Dosage: UNK
     Route: 065
  5. ACETAMINOPHEN/COD [Concomitant]
     Indication: DRUG USE FOR UNKNOWN INDICATION
     Dosage: UNK
     Route: 065
  6. AMBIEN [Suspect]
     Indication: INSOMNIA
     Route: 048
     Dates: start: 20030401, end: 20061101

REACTIONS (18)
  - AGGRESSION [None]
  - AMNESIA [None]
  - ANALGESIC EFFECT [None]
  - BINGE EATING [None]
  - CONFUSIONAL STATE [None]
  - CONTUSION [None]
  - DYSARTHRIA [None]
  - FALL [None]
  - HYPOAESTHESIA [None]
  - INJURY [None]
  - LIMB INJURY [None]
  - NEUROPATHY PERIPHERAL [None]
  - PAIN [None]
  - RADIAL TUNNEL SYNDROME [None]
  - SLEEP WALKING [None]
  - SURGERY [None]
  - TENDONITIS [None]
  - WEIGHT INCREASED [None]
